FAERS Safety Report 8191890-8 (Version None)
Quarter: 2012Q1

REPORT INFORMATION
  Report Type: 
  Country: None (occurrence: None)
  Receive Date: 20120307
  Receipt Date: 20120223
  Transmission Date: 20120608
  Serious: Yes (Hospitalization, Other)
  Sender: FDA-Public Use
  Company Number: PHHY2012FR015941

PATIENT
  Sex: Female

DRUGS (8)
  1. ATHYMIL [Concomitant]
  2. HAVLANE [Concomitant]
  3. PHENYTOIN SODIUM [Concomitant]
  4. POTASSIUM CHLORIDE [Concomitant]
  5. ATARAX [Concomitant]
  6. OXAZEPAM [Concomitant]
  7. VALSARTAN  AND HYDROCHLOROTHIAZIDE [Suspect]
     Indication: HYPERTENSION
     Dates: start: 20111208, end: 20111215
  8. RISPERDAL [Suspect]
     Indication: MAJOR DEPRESSION

REACTIONS (4)
  - HYPOTENSION [None]
  - MALAISE [None]
  - LOSS OF CONSCIOUSNESS [None]
  - MUSCULOSKELETAL DISORDER [None]
